FAERS Safety Report 5449702-9 (Version None)
Quarter: 2007Q3

REPORT INFORMATION
  Report Type: 
  Country: None (occurrence: None)
  Receive Date: 20070910
  Receipt Date: 20070824
  Transmission Date: 20080115
  Serious: Yes (Other)
  Sender: FDA-Public Use
  Company Number: 2007-02885

PATIENT
  Age: 60 Year
  Sex: Female

DRUGS (1)
  1. VELCADE [Suspect]
     Indication: MULTIPLE MYELOMA
     Dosage: INTRAVENOUS
     Route: 042
     Dates: start: 20070101, end: 20070801

REACTIONS (3)
  - CARDIOMEGALY [None]
  - FEELING ABNORMAL [None]
  - TRANSAMINASES INCREASED [None]
